FAERS Safety Report 18756516 (Version 2)
Quarter: 2021Q1

REPORT INFORMATION
  Report Type: Spontaneous
  Country: PL (occurrence: PL)
  Receive Date: 20210119
  Receipt Date: 20210126
  Transmission Date: 20210419
  Serious: Yes (Hospitalization)
  Sender: FDA-Public Use
  Company Number: PL-PFIZER INC-2021026858

PATIENT
  Age: 86 Year
  Sex: Female

DRUGS (6)
  1. ALLOPURINOL. [Concomitant]
     Active Substance: ALLOPURINOL
     Dosage: UNK
     Route: 065
  2. ATORVASTATIN CALCIUM. [Suspect]
     Active Substance: ATORVASTATIN CALCIUM
     Dosage: UNK
  3. METOPROLOL. [Suspect]
     Active Substance: METOPROLOL
     Dosage: UNK
     Route: 065
  4. ENTRESTO [Suspect]
     Active Substance: SACUBITRIL\VALSARTAN
     Indication: CARDIAC FAILURE
     Dosage: 50 MG (24/26 MG), (FROM 4 MONTHS)
  5. FLUCONAZOLUM [FLUCONAZOLE] [Concomitant]
     Dosage: UNK
     Route: 065
  6. TORASEMIDE [Suspect]
     Active Substance: TORSEMIDE
     Dosage: UNK
     Route: 065

REACTIONS (3)
  - Hypoglycaemia [Unknown]
  - Glomerular filtration rate decreased [Unknown]
  - Hepatic enzyme increased [Unknown]
